FAERS Safety Report 5349609-1 (Version None)
Quarter: 2007Q2

REPORT INFORMATION
  Report Type: 
  Country: None (occurrence: None)
  Receive Date: 20070607
  Receipt Date: 20070601
  Transmission Date: 20071010
  Serious: Yes (Life-Threatening, Hospitalization)
  Sender: FDA-Public Use
  Company Number: AU-JNJFOC-20070506645

PATIENT
  Sex: Male
  Weight: 85 kg

DRUGS (14)
  1. TMC114 [Suspect]
     Route: 048
  2. TMC114 [Suspect]
     Indication: HIV INFECTION
     Route: 048
  3. RITONAVIR [Suspect]
     Indication: HIV INFECTION
     Route: 048
  4. RALTEGRAVIR [Concomitant]
     Indication: HIV INFECTION
     Route: 048
  5. LAMIVUDINE [Concomitant]
     Indication: HIV INFECTION
     Route: 048
  6. UK-427/PLACEBO [Concomitant]
     Indication: HIV INFECTION
     Route: 048
  7. CEFTRIAXONE [Concomitant]
     Indication: LOWER RESPIRATORY TRACT INFECTION
     Route: 042
  8. MIST MORPHINE [Concomitant]
     Indication: NEURALGIA
     Route: 048
  9. CITALOPRAM [Concomitant]
     Indication: DEPRESSION
     Route: 048
  10. AMOXIL [Concomitant]
     Indication: INFECTION PROPHYLAXIS
     Route: 048
  11. ROXITHROMYCIN [Concomitant]
     Indication: PNEUMONIA
     Route: 048
  12. WARFARIN SODIUM [Concomitant]
     Indication: PROPHYLAXIS
     Route: 048
  13. MK-0518 [Concomitant]
     Indication: HIV INFECTION
     Route: 048
  14. ESCITALOPRAM OXALATE [Concomitant]
     Route: 065

REACTIONS (2)
  - HAEMOPTYSIS [None]
  - RESPIRATORY ARREST [None]
